FAERS Safety Report 12583548 (Version 1)
Quarter: 2016Q3

REPORT INFORMATION
  Report Type: Spontaneous
  Country: US (occurrence: US)
  Receive Date: 20160722
  Receipt Date: 20160722
  Transmission Date: 20161109
  Serious: No
  Sender: FDA-Public Use
  Company Number: US-GALDERMA-US15006000

PATIENT
  Sex: Female

DRUGS (1)
  1. DIFFERIN [Suspect]
     Active Substance: ADAPALENE
     Indication: CHLOASMA
     Dosage: 0.1%
     Route: 061

REACTIONS (3)
  - Product use issue [Not Recovered/Not Resolved]
  - Condition aggravated [Unknown]
  - Chloasma [Not Recovered/Not Resolved]
